FAERS Safety Report 9223563 (Version 1)
Quarter: 2013Q2

REPORT INFORMATION
  Report Type: Spontaneous
  Country: CA (occurrence: CA)
  Receive Date: 20130410
  Receipt Date: 20130410
  Transmission Date: 20140414
  Serious: Yes (Other)
  Sender: FDA-Public Use
  Company Number: CA-ASTRAZENECA-2013SE08735

PATIENT
  Age: 66 Year
  Sex: Male
  Weight: 67.4 kg

DRUGS (3)
  1. BRILINTA [Suspect]
     Indication: ACUTE CORONARY SYNDROME
     Route: 048
  2. LIPITOR [Suspect]
     Route: 065
  3. OTHER MEDICATIONS [Concomitant]

REACTIONS (1)
  - Alanine aminotransferase increased [Recovered/Resolved]
